FAERS Safety Report 6367738-0 (Version None)
Quarter: 2009Q3

REPORT INFORMATION
  Report Type: 
  Country: None (occurrence: None)
  Receive Date: 20090921
  Receipt Date: 20090917
  Transmission Date: 20100115
  Serious: Yes (Death, Other)
  Sender: FDA-Public Use
  Company Number: PHHY2009GB24682

PATIENT
  Sex: Male

DRUGS (7)
  1. EXELON [Suspect]
     Indication: DEMENTIA
     Dosage: 6 MG, BID
     Route: 048
     Dates: start: 20050101
  2. ZOPICLONE [Concomitant]
  3. CALCICHEW [Concomitant]
  4. SLO-PHYLLIN [Concomitant]
  5. SALBUTAMOL [Concomitant]
  6. MELOXICAM [Concomitant]
  7. LORATADINE [Concomitant]

REACTIONS (8)
  - AGITATION [None]
  - BEDRIDDEN [None]
  - CONFUSIONAL STATE [None]
  - FALL [None]
  - GENERAL PHYSICAL HEALTH DETERIORATION [None]
  - MOBILITY DECREASED [None]
  - PNEUMONIA [None]
  - RESTLESSNESS [None]
